FAERS Safety Report 10374451 (Version 1)
Quarter: 2014Q3

REPORT INFORMATION
  Report Type: Spontaneous
  Country: US (occurrence: US)
  Receive Date: 20140811
  Receipt Date: 20140811
  Transmission Date: 20150326
  Serious: Yes (Death)
  Sender: FDA-Public Use
  Company Number: US-UNITED THERAPEUTICS-UNT-2014-005081

PATIENT
  Sex: Male

DRUGS (1)
  1. TYVASO [Suspect]
     Active Substance: TREPROSTINIL
     Indication: PULMONARY ARTERIAL HYPERTENSION
     Dosage: 18 ?G, TID
     Dates: start: 20130220, end: 20140712

REACTIONS (1)
  - Pulmonary arterial hypertension [Fatal]

NARRATIVE: CASE EVENT DATE: 20140712
